FAERS Safety Report 5006704-4 (Version None)
Quarter: 2006Q2

REPORT INFORMATION
  Report Type: 
  Country: None (occurrence: None)
  Receive Date: 20060519
  Receipt Date: 20060510
  Transmission Date: 20061013
  Serious: Yes (Other)
  Sender: FDA-Public Use
  Company Number: PHBS2006ES06878

PATIENT
  Age: 62 Year
  Sex: Female

DRUGS (1)
  1. ZOMETA [Suspect]
     Indication: CALCIUM METABOLISM DISORDER
     Dosage: 4 MG
     Route: 065
     Dates: start: 20030516, end: 20060216

REACTIONS (1)
  - OSTEONECROSIS [None]
